FAERS Safety Report 6057968-X (Version None)
Quarter: 2009Q1

REPORT INFORMATION
  Report Type: 
  Country: None (occurrence: None)
  Receive Date: 20090129
  Receipt Date: 20090124
  Transmission Date: 20090719
  Serious: No
  Sender: FDA-Public Use
  Company Number: US-B.I. PHARMACEUTICALS,INC./RIDGEFIELD-2009-BP-00918BP

PATIENT
  Sex: Female

DRUGS (13)
  1. ZANTAC 150 [Suspect]
     Indication: GASTROOESOPHAGEAL REFLUX DISEASE
     Dosage: 150MG
     Route: 048
     Dates: start: 20080701
  2. LEVOTHYROXINE SODIUM [Concomitant]
     Indication: HYPOTHYROIDISM
     Dosage: 25MCG
     Route: 048
     Dates: start: 20070101
  3. ESTRATEST [Concomitant]
     Indication: HORMONE REPLACEMENT THERAPY
     Route: 048
     Dates: start: 19890101
  4. VERAPAMIL [Concomitant]
     Indication: HYPERTENSION
     Dosage: 180MG
     Route: 048
  5. TOPAMAX [Concomitant]
     Indication: MIGRAINE
     Dosage: 125MG
     Route: 048
     Dates: start: 20060101
  6. MAGNESIUM SULFATE [Concomitant]
     Indication: ROUTINE HEALTH MAINTENANCE
     Dosage: 250MG
     Route: 048
     Dates: start: 20080101
  7. VITAMIN D [Concomitant]
     Indication: PROPHYLAXIS
     Dosage: 400MG
     Route: 048
     Dates: start: 20080101
  8. VITAMIN B COMPLEX CAP [Concomitant]
     Indication: STRESS
     Route: 048
     Dates: start: 20070101
  9. FISH OIL [Concomitant]
     Indication: CARDIOVASCULAR EVENT PROPHYLAXIS
     Dosage: 1000MG
     Route: 048
  10. MULTI-VITAMIN [Concomitant]
     Route: 048
     Dates: start: 20070101
  11. FROVA [Concomitant]
     Indication: MIGRAINE
     Dosage: 2.5MG
     Route: 048
     Dates: start: 20000101
  12. AXERT [Concomitant]
     Indication: MIGRAINE
     Dosage: 12.5MG
     Route: 048
     Dates: start: 20000101
  13. DIHYDROERGOTAMINE MESYLATE [Concomitant]
     Indication: MIGRAINE
     Dosage: 1MG
     Route: 051
     Dates: start: 20000101

REACTIONS (2)
  - CHEST DISCOMFORT [None]
  - MIGRAINE [None]
